FAERS Safety Report 4730743-1 (Version None)
Quarter: 2005Q3

REPORT INFORMATION
  Report Type: 
  Country: None (occurrence: None)
  Receive Date: 20050725
  Receipt Date: 20050317
  Transmission Date: 20060218
  Serious: No
  Sender: FDA-Public Use
  Company Number: USA050393545

PATIENT
  Age: 58 Year
  Sex: Female
  Weight: 55 kg

DRUGS (3)
  1. STRATTERA [Suspect]
     Indication: DISTURBANCE IN ATTENTION
     Dosage: 40 MG DAY
     Dates: start: 20050101
  2. STRATTERA [Suspect]
     Indication: MEMORY IMPAIRMENT
     Dosage: 40 MG DAY
     Dates: start: 20050101
  3. PREMARIN [Concomitant]

REACTIONS (6)
  - ABDOMINAL DISTENSION [None]
  - CHILLS [None]
  - CONSTIPATION [None]
  - INSOMNIA [None]
  - LETHARGY [None]
  - SOMNOLENCE [None]
